FAERS Safety Report 5564222-9 (Version None)
Quarter: 2007Q4

REPORT INFORMATION
  Report Type: 
  Country: None (occurrence: None)
  Receive Date: 20071217
  Receipt Date: 20071210
  Transmission Date: 20080405
  Serious: Yes (Death, Other)
  Sender: FDA-Public Use
  Company Number: JP-MERCK-0711USA04499

PATIENT
  Age: 1 Year
  Sex: Female

DRUGS (11)
  1. PEPCID [Suspect]
     Indication: GASTROINTESTINAL HAEMORRHAGE
     Route: 042
     Dates: start: 20050420, end: 20050510
  2. TARGOCID [Suspect]
     Indication: STAPHYLOCOCCAL SEPSIS
     Route: 042
     Dates: start: 20050422, end: 20050509
  3. TARGOCID [Suspect]
     Route: 048
     Dates: start: 20050521, end: 20050527
  4. BIAPENEM [Suspect]
     Indication: PSEUDOMONAS INFECTION
     Route: 042
     Dates: start: 20050507, end: 20050510
  5. STRONGER NEO-MINOPHAGEN C [Concomitant]
     Indication: HEPATIC FUNCTION ABNORMAL
     Route: 042
     Dates: start: 20050505, end: 20050612
  6. DECADRON [Concomitant]
     Indication: ACUTE RESPIRATORY DISTRESS SYNDROME
     Route: 042
     Dates: start: 20050209, end: 20050217
  7. PREDONINE [Concomitant]
     Indication: ACUTE RESPIRATORY DISTRESS SYNDROME
     Route: 042
     Dates: start: 20050223, end: 20050227
  8. CYCLOSPORINE [Concomitant]
     Indication: HEPATIC FUNCTION ABNORMAL
     Route: 042
     Dates: start: 20050314, end: 20050413
  9. VANCOMYCIN [Concomitant]
     Indication: STAPHYLOCOCCAL INFECTION
     Route: 042
     Dates: start: 20050408, end: 20050413
  10. FOY [Concomitant]
     Indication: DISSEMINATED INTRAVASCULAR COAGULATION
     Route: 065
     Dates: start: 20050423, end: 20050502
  11. MEROPEN [Concomitant]
     Indication: PSEUDOMONAS INFECTION
     Route: 042
     Dates: start: 20050425, end: 20050503

REACTIONS (6)
  - ANURIA [None]
  - BLOOD BILIRUBIN INCREASED [None]
  - DISSEMINATED INTRAVASCULAR COAGULATION [None]
  - METABOLIC ACIDOSIS [None]
  - MULTI-ORGAN FAILURE [None]
  - PANCYTOPENIA [None]
